FAERS Safety Report 4714035-2 (Version None)
Quarter: 2005Q3

REPORT INFORMATION
  Report Type: 
  Country: None (occurrence: None)
  Receive Date: 20050713
  Receipt Date: 20050708
  Transmission Date: 20060218
  Serious: Yes (Death)
  Sender: FDA-Public Use
  Company Number: 2005S1003724

PATIENT
  Age: 60 Year
  Sex: Female

DRUGS (9)
  1. CLOZAPINE [Suspect]
     Indication: SCHIZOPHRENIA, PARANOID TYPE
     Dosage: 25 MG;QAM;PO
     Route: 048
     Dates: start: 20030701, end: 20050301
  2. CLONAZEPAM [Concomitant]
  3. SYMBYAX [Concomitant]
  4. BUSIPRONE [Concomitant]
  5. TRIFLUOPERAZINE HYDROCHLORIDE [Concomitant]
  6. BENZATROPINE MESILATE [Concomitant]
  7. LISINOPRIL [Concomitant]
  8. CITALOPRAM [Concomitant]
  9. CLOZAPINE [Suspect]
     Dosage: 300MG; HS; PO
     Route: 048
     Dates: start: 20030701, end: 20050301

REACTIONS (1)
  - CARDIAC ARREST [None]
